FAERS Safety Report 5080370-4 (Version None)
Quarter: 2006Q3

REPORT INFORMATION
  Report Type: 
  Country: None (occurrence: None)
  Receive Date: 20060814
  Receipt Date: 20060814
  Transmission Date: 20061208
  Serious: Yes (Other)
  Sender: FDA-Public Use
  Company Number: None

PATIENT
  Sex: Female
  Weight: 88.8 kg

DRUGS (1)
  1. BACLOFEN [Suspect]
     Indication: SPONDYLOLYSIS
     Dosage: 10 MG Q 8 H PRN PO  ONLY 1 DOSE WAS TAKEN
     Route: 048
     Dates: start: 20060727, end: 20060727

REACTIONS (2)
  - AGITATION [None]
  - ANXIETY [None]
